FAERS Safety Report 23229840 (Version 2)
Quarter: 2023Q4

REPORT INFORMATION
  Report Type: Spontaneous
  Country: US (occurrence: US)
  Receive Date: 20231127
  Receipt Date: 20231212
  Transmission Date: 20240109
  Serious: No
  Sender: FDA-Public Use
  Company Number: US-LUPIN PHARMACEUTICALS INC.-2023-10556

PATIENT

DRUGS (3)
  1. BUDESONIDE [Suspect]
     Active Substance: BUDESONIDE
     Indication: Inflammation
     Dosage: UNK, BID
     Route: 065
     Dates: start: 2010
  2. BUDESONIDE [Suspect]
     Active Substance: BUDESONIDE
     Indication: Gastrooesophageal reflux disease
  3. ONFI [Concomitant]
     Active Substance: CLOBAZAM
     Indication: Seizure
     Dosage: UNK
     Route: 065

REACTIONS (3)
  - Vomiting [Unknown]
  - Product prescribing issue [Unknown]
  - Product use in unapproved indication [Unknown]
